FAERS Safety Report 10788086 (Version 1)
Quarter: 2015Q1

REPORT INFORMATION
  Report Type: Spontaneous
  Country: GB (occurrence: None)
  Receive Date: 20150210
  Receipt Date: 20150210
  Transmission Date: 20150721
  Serious: Yes (Other)
  Sender: FDA-Public Use
  Company Number: 2015-UK-0023

PATIENT
  Sex: Female

DRUGS (1)
  1. FARESTON (NON-US) (TOREMIFENE) [Suspect]
     Active Substance: TOREMIFENE CITRATE
     Indication: BREAST CANCER

REACTIONS (1)
  - Angina pectoris [None]
